FAERS Safety Report 8963330 (Version 1)
Quarter: 2012Q4

REPORT INFORMATION
  Report Type: Report from Study
  Country: US (occurrence: US)
  Receive Date: 20121213
  Receipt Date: 20121213
  Transmission Date: 20130627
  Serious: Yes (Other)
  Sender: FDA-Public Use
  Company Number: US-PFIZER INC-2012311806

PATIENT
  Age: 30 Year
  Sex: Female

DRUGS (2)
  1. CELEBREX [Suspect]
  2. HUMIRA [Suspect]
     Indication: RHEUMATOID ARTHRITIS
     Dosage: unk (40 mg, 1 in 2 wk)
     Route: 058
     Dates: start: 2008, end: 2009

REACTIONS (2)
  - Perforated ulcer [Recovered/Resolved]
  - Gastric disorder [Unknown]
